FAERS Safety Report 6426626-1 (Version None)
Quarter: 2009Q4

REPORT INFORMATION
  Report Type: 
  Country: None (occurrence: None)
  Receive Date: 20091030
  Receipt Date: 20090607
  Transmission Date: 20100525
  Serious: Yes (Hospitalization, Other)
  Sender: FDA-Public Use
  Company Number: CL-55-2009

PATIENT
  Age: 36 Week
  Sex: Female
  Weight: 2.27 kg

DRUGS (4)
  1. ONDANSETRON [Suspect]
     Dosage: TRANSPLACENTAL
     Route: 064
  2. CITALOPRAM HYDROBROMIDE [Suspect]
     Dosage: TRANSPLACENTAL
     Route: 064
  3. URSODIL (URODEOXYCHOLIC ACID) [Concomitant]
  4. RANITIDINE (ZANTAC) [Concomitant]

REACTIONS (9)
  - GRUNTING [None]
  - HYPERTONIA [None]
  - INDUCED LABOUR [None]
  - MATERNAL DRUGS AFFECTING FOETUS [None]
  - METABOLIC ACIDOSIS [None]
  - PREMATURE BABY [None]
  - PUPILLARY REFLEX IMPAIRED [None]
  - RESPIRATORY DISTRESS [None]
  - TARDIVE DYSKINESIA [None]
